FAERS Safety Report 25649336 (Version 1)
Quarter: 2025Q3

REPORT INFORMATION
  Report Type: Spontaneous
  Country: US (occurrence: US)
  Receive Date: 20250806
  Receipt Date: 20250806
  Transmission Date: 20251020
  Serious: No
  Sender: PFIZER
  Company Number: US-PFIZER INC-202500158053

PATIENT
  Age: 44 Year
  Sex: Male

DRUGS (1)
  1. LITFULO [Suspect]
     Active Substance: RITLECITINIB TOSYLATE
     Dosage: 1 DF, 1X/DAY (TAKE 1 TABLET - AS REPORTED)
     Route: 048
     Dates: start: 20250701, end: 20250724

REACTIONS (2)
  - Illness [Unknown]
  - Product dose omission issue [Unknown]
